FAERS Safety Report 11251944 (Version 1)
Quarter: 2015Q3

REPORT INFORMATION
  Report Type: Spontaneous
  Country: US (occurrence: US)
  Receive Date: 20150708
  Receipt Date: 20150708
  Transmission Date: 20151125
  Serious: Yes (Other)
  Sender: FDA-Public Use
  Company Number: US-ELI_LILLY_AND_COMPANY-US201210004616

PATIENT
  Sex: Male

DRUGS (2)
  1. GEMZAR [Suspect]
     Active Substance: GEMCITABINE HYDROCHLORIDE
     Dosage: 500 MG/M2, OTHER
     Route: 065
     Dates: start: 20121002
  2. GEMZAR [Suspect]
     Active Substance: GEMCITABINE HYDROCHLORIDE
     Indication: PANCREATIC CARCINOMA
     Dosage: 1000 MG/M2, EVERY 3WEEKS
     Route: 065
     Dates: start: 20120911

REACTIONS (2)
  - Platelet count decreased [Unknown]
  - Neutropenia [Unknown]
